FAERS Safety Report 13123384 (Version 2)
Quarter: 2017Q3

REPORT INFORMATION
  Report Type: Report from Study
  Country: US (occurrence: US)
  Receive Date: 20170117
  Receipt Date: 20170712
  Transmission Date: 20171127
  Serious: Yes (Death, Hospitalization, Other)
  Sender: FDA-Public Use
  Company Number: US-BRISTOL-MYERS SQUIBB COMPANY-BMS-2017-000959

PATIENT
  Age: 66 Year
  Sex: Male
  Weight: 87.75 kg

DRUGS (18)
  1. ZOFRAN [Concomitant]
     Active Substance: ONDANSETRON HYDROCHLORIDE
     Indication: VOMITING
     Route: 065
  2. PROTONIX                           /00661201/ [Concomitant]
     Active Substance: OMEPRAZOLE
     Indication: DYSPHAGIA
     Dosage: 40 MG, ALSO ON 03/JAN/2017
     Route: 048
     Dates: start: 20161225
  3. UREACIN [Concomitant]
     Indication: UPPER RESPIRATORY TRACT INFECTION
     Dosage: 1 DF: 20-20 %, DOSAGE: 3/DAY
     Route: 061
  4. LEVAQUIN [Concomitant]
     Active Substance: LEVOFLOXACIN
     Indication: PRODUCT USED FOR UNKNOWN INDICATION
     Dosage: UNK
     Route: 065
     Dates: start: 20170107, end: 20170112
  5. COMPAZINE                          /00013302/ [Concomitant]
     Active Substance: PROCHLORPERAZINE EDISYLATE
     Indication: PRODUCT USED FOR UNKNOWN INDICATION
     Dosage: UNK
     Route: 065
     Dates: start: 20161227
  6. TYLENOL EXTRA STRENGTH [Concomitant]
     Active Substance: ACETAMINOPHEN
     Indication: PROPHYLAXIS
     Dosage: 1 DF: 300-30MG, PRN
     Route: 048
     Dates: start: 2006
  7. NORVASC [Concomitant]
     Active Substance: AMLODIPINE BESYLATE
     Indication: HYPERTENSION
     Dosage: 5 MG, QD
     Route: 048
     Dates: start: 2011
  8. METAMUCIL [Concomitant]
     Active Substance: PLANTAGO SEED
     Indication: FAECES SOFT
     Dosage: 1 DF: 1TSP QD, ALSO ON 04/JAN/2017
     Route: 048
     Dates: start: 2015
  9. ALKA-SELTZER PLUS COLD             /00446801/ [Concomitant]
     Indication: UPPER RESPIRATORY TRACT INFECTION
     Dosage: UNK
     Route: 048
     Dates: start: 20161230, end: 20170102
  10. XANAX [Concomitant]
     Active Substance: ALPRAZOLAM
     Indication: ANXIETY
     Dosage: 0.5 MG, PRN, THERAPY DATE: 02/JAN/2017
     Route: 048
     Dates: start: 201506
  11. ADVAIR HFA [Concomitant]
     Active Substance: FLUTICASONE PROPIONATE\SALMETEROL XINAFOATE
     Indication: COUGH
     Dosage: 1 DF: 250-25  MCG, ALSO ON 04/JAN/2017
     Route: 055
     Dates: start: 20161003
  12. ZOFRAN [Concomitant]
     Active Substance: ONDANSETRON HYDROCHLORIDE
     Indication: NAUSEA
     Dosage: 8 MG, PRN, DOSAGE: EVERY 8HOURS
     Route: 048
  13. TESTOSTERONE. [Concomitant]
     Active Substance: TESTOSTERONE
     Indication: HORMONE REPLACEMENT THERAPY
     Dosage: DOSAGE: WEEKLY, ALSO ON DEC2016
     Route: 030
     Dates: start: 20160418
  14. HYZAAR [Concomitant]
     Active Substance: HYDROCHLOROTHIAZIDE\LOSARTAN POTASSIUM
     Indication: PRODUCT USED FOR UNKNOWN INDICATION
     Dosage: 1 DF: 100-25 UNIT NOS
     Route: 065
     Dates: start: 2011
  15. FPA008 [Suspect]
     Active Substance: CABIRALIZUMAB
     Indication: NEOPLASM MALIGNANT
     Dosage: 4 MG/KG, Q2WK
     Route: 042
     Dates: start: 20161228
  16. AMBIEN [Concomitant]
     Active Substance: ZOLPIDEM TARTRATE
     Indication: INSOMNIA
     Dosage: 10 MG, PRN, DOSAGE: 1TAB, 02/JAN/2017
     Route: 048
     Dates: start: 201501
  17. NIVOLUMAB [Suspect]
     Active Substance: NIVOLUMAB
     Indication: NEOPLASM MALIGNANT
     Dosage: 3 MG/KG, Q2WK
     Route: 042
     Dates: start: 20161228
  18. TYLENOL COLD + FLU [Concomitant]
     Active Substance: ACETAMINOPHEN\DEXTROMETHORPHAN\PSEUDOEPHEDRINE
     Indication: UPPER RESPIRATORY TRACT INFECTION
     Dosage: 325 MG, UNK
     Route: 048
     Dates: start: 20170103

REACTIONS (3)
  - Acute respiratory failure [Fatal]
  - Pneumonitis [Not Recovered/Not Resolved]
  - Bundle branch block right [Recovered/Resolved with Sequelae]

NARRATIVE: CASE EVENT DATE: 20170104
